FAERS Safety Report 9553007 (Version 2)
Quarter: 2013Q3

REPORT INFORMATION
  Report Type: Spontaneous
  Country: DK (occurrence: JP)
  Receive Date: 20130925
  Receipt Date: 20130925
  Transmission Date: 20140515
  Serious: Yes (Hospitalization)
  Sender: FDA-Public Use
  Company Number: JP-FRI-1000042572

PATIENT
  Sex: Female

DRUGS (9)
  1. LEXAPRO [Suspect]
     Indication: DEPRESSION
     Dosage: 20 MG
     Route: 048
     Dates: end: 20130220
  2. REMERON [Concomitant]
     Route: 048
  3. RHYTHMY [Concomitant]
     Route: 048
  4. MYSLEE [Concomitant]
     Dosage: 1 DF
     Route: 048
  5. CERCINE [Concomitant]
     Dosage: 3 DF
     Route: 048
  6. GASMOTIN [Concomitant]
     Dosage: 3 DF
     Route: 048
  7. SILECE [Concomitant]
     Dosage: 1 DF
     Route: 048
  8. VEGETAMIN-B [Concomitant]
     Dosage: 1 DF
     Route: 048
  9. RISPERDAL [Concomitant]
     Route: 062

REACTIONS (4)
  - Threatened labour [Recovering/Resolving]
  - Subchorionic haematoma [Not Recovered/Not Resolved]
  - Weight increased [Recovering/Resolving]
  - Pregnancy [Unknown]
